FAERS Safety Report 14762508 (Version 1)
Quarter: 2018Q2

REPORT INFORMATION
  Report Type: Spontaneous
  Country: US (occurrence: US)
  Receive Date: 20180409
  Receipt Date: 20180409
  Transmission Date: 20180711
  Serious: No
  Sender: FDA-Public Use
  Company Number: None

PATIENT
  Age: 66 Year
  Sex: Male

DRUGS (2)
  1. LONSURF [Suspect]
     Active Substance: TIPIRACIL HYDROCHLORIDE\TRIFLURIDINE
     Indication: NEOPLASM MALIGNANT
     Dosage: 5-5.14 MG
     Route: 048
     Dates: start: 20180329
  2. LONSURF [Suspect]
     Active Substance: TIPIRACIL HYDROCHLORIDE\TRIFLURIDINE
     Dosage: 20-8.19 MG
     Route: 048
     Dates: start: 20180329

REACTIONS (1)
  - Joint swelling [None]

NARRATIVE: CASE EVENT DATE: 20180101
